FAERS Safety Report 9320953 (Version 1)
Quarter: 2013Q2

REPORT INFORMATION
  Report Type: Spontaneous
  Country: US (occurrence: None)
  Receive Date: 20130528
  Receipt Date: 20130528
  Transmission Date: 20140414
  Serious: Yes (Hospitalization, Other)
  Sender: FDA-Public Use
  Company Number: ADR-2013-00883

PATIENT
  Age: 28 Year
  Sex: Female

DRUGS (3)
  1. BACLOFEN [Suspect]
  2. DICLOFENAC [Suspect]
  3. PARACETAMOL [Concomitant]

REACTIONS (3)
  - Blood pressure decreased [None]
  - Dizziness [None]
  - Anxiety [None]
